FAERS Safety Report 13297902 (Version 2)
Quarter: 2017Q1

REPORT INFORMATION
  Report Type: Spontaneous
  Country: US (occurrence: US)
  Receive Date: 20170306
  Receipt Date: 20170329
  Transmission Date: 20170428
  Serious: No
  Sender: FDA-Public Use
  Company Number: US-CIPLA LTD.-2017US00613

PATIENT

DRUGS (1)
  1. BUPROPION HYDROCHLORIDE XL [Suspect]
     Active Substance: BUPROPION HYDROCHLORIDE
     Indication: DEPRESSION
     Dosage: UNK
     Route: 065

REACTIONS (5)
  - Hyperhidrosis [Recovered/Resolved]
  - Depression [Recovered/Resolved]
  - Product substitution issue [Unknown]
  - Withdrawal syndrome [Recovered/Resolved]
  - Drug ineffective [Unknown]
